FAERS Safety Report 9618849 (Version 1)
Quarter: 2013Q4

REPORT INFORMATION
  Report Type: Spontaneous
  Country: IT (occurrence: IT)
  Receive Date: 20131014
  Receipt Date: 20131014
  Transmission Date: 20140711
  Serious: Yes (Hospitalization)
  Sender: FDA-Public Use
  Company Number: IT-MYLANLABS-2013S1022178

PATIENT
  Age: 42 Year
  Sex: Female

DRUGS (2)
  1. IRBESARTAN [Suspect]
     Indication: HYPERTENSION
     Dosage: 150 MG/DAY
     Route: 065
  2. ETHINYLESTRADIOL/GESTODENE [Interacting]
     Indication: ORAL CONTRACEPTION
     Route: 048

REACTIONS (2)
  - Autoimmune hepatitis [Recovering/Resolving]
  - Food interaction [Recovering/Resolving]
